FAERS Safety Report 8239116-0 (Version None)
Quarter: 2012Q1

REPORT INFORMATION
  Report Type: 
  Country: None (occurrence: None)
  Receive Date: 20120328
  Receipt Date: 20120320
  Transmission Date: 20120608
  Serious: Yes (Hospitalization)
  Sender: FDA-Public Use
  Company Number: BR-BRISTOL-MYERS SQUIBB COMPANY-16400640

PATIENT
  Age: 49 Year
  Sex: Male

DRUGS (3)
  1. METHYLPREDNISOLONE [Concomitant]
     Dates: start: 20120106, end: 20120101
  2. DEXAMETHASONE [Concomitant]
     Dates: start: 20110101
  3. IPILIMUMAB [Suspect]
     Indication: MALIGNANT MELANOMA
     Dosage: 1DF: 233.4 UNITS NOS 16DEC11
     Route: 042
     Dates: start: 20111125, end: 20120127

REACTIONS (2)
  - METASTASES TO CENTRAL NERVOUS SYSTEM [None]
  - ERYSIPELAS [None]
